FAERS Safety Report 25984077 (Version 1)
Quarter: 2025Q4

REPORT INFORMATION
  Report Type: Spontaneous
  Country: EU (occurrence: EU)
  Receive Date: 20251031
  Receipt Date: 20251031
  Transmission Date: 20260118
  Serious: Yes (Hospitalization, Other)
  Sender: RANBAXY
  Company Number: EU-AFSSAPS-AVLY2025000258

PATIENT
  Age: 35 Year
  Sex: Male

DRUGS (1)
  1. PREGABALIN [Suspect]
     Active Substance: PREGABALIN
     Indication: Product used for unknown indication
     Dosage: 900MG/DAY
     Route: 048
     Dates: start: 2019

REACTIONS (3)
  - Pancreatitis acute [Recovered/Resolved]
  - Drug dependence [Recovering/Resolving]
  - Drug withdrawal maintenance therapy [Recovering/Resolving]

NARRATIVE: CASE EVENT DATE: 20190101
